FAERS Safety Report 6143128-0 (Version None)
Quarter: 2009Q2

REPORT INFORMATION
  Report Type: 
  Country: None (occurrence: None)
  Receive Date: 20090403
  Receipt Date: 20090327
  Transmission Date: 20091009
  Serious: Yes (Disabling)
  Sender: FDA-Public Use
  Company Number: JP-ELI_LILLY_AND_COMPANY-JP200903007104

PATIENT
  Age: 55 Year
  Sex: Male

DRUGS (1)
  1. GEMZAR [Suspect]
     Indication: BILE DUCT CANCER RECURRENT
     Dosage: 1200 MG, OTHER
     Route: 042
     Dates: start: 20081208, end: 20090301

REACTIONS (1)
  - WERNICKE'S ENCEPHALOPATHY [None]
